FAERS Safety Report 12110819 (Version 1)
Quarter: 2016Q1

REPORT INFORMATION
  Report Type: Spontaneous
  Country: US (occurrence: US)
  Receive Date: 20160224
  Receipt Date: 20160224
  Transmission Date: 20160526
  Serious: No
  Sender: FDA-Public Use
  Company Number: US-JAZZ-2014-US-016282

PATIENT
  Sex: Female

DRUGS (16)
  1. BACLOFEN. [Suspect]
     Active Substance: BACLOFEN
     Indication: SPINAL PAIN
     Dosage: 1.5 ?G, QH
     Route: 037
     Dates: start: 20140324
  2. ASPIRIN. [Concomitant]
     Active Substance: ASPIRIN
  3. CYCLOBENZAPRINE HCL [Concomitant]
     Active Substance: CYCLOBENZAPRINE HYDROCHLORIDE
  4. LASIX [Concomitant]
     Active Substance: FUROSEMIDE
  5. NITROGLYCERIN. [Concomitant]
     Active Substance: NITROGLYCERIN
  6. PRIALT [Suspect]
     Active Substance: ZICONOTIDE ACETATE
     Indication: SPINAL PAIN
     Dosage: 0.125 ?G, QH
     Route: 037
     Dates: start: 20130404
  7. DICYCLOMINE [Concomitant]
     Active Substance: DICYCLOMINE HYDROCHLORIDE
  8. SPIRONOLACTONE. [Concomitant]
     Active Substance: SPIRONOLACTONE
  9. HYDROXYZINE HCL [Concomitant]
     Active Substance: HYDROXYZINE HYDROCHLORIDE
  10. SUFENTANIL CITRATE. [Concomitant]
     Active Substance: SUFENTANIL CITRATE
  11. BUPIVACAINE HYDROCHLORIDE. [Suspect]
     Active Substance: BUPIVACAINE HYDROCHLORIDE
     Indication: SPINAL PAIN
     Dosage: 0.075 MG, QH
     Route: 037
     Dates: start: 20131230
  12. VYTORIN [Concomitant]
     Active Substance: EZETIMIBE\SIMVASTATIN
  13. LORAZEPAM. [Concomitant]
     Active Substance: LORAZEPAM
  14. ZOLPIDEM [Concomitant]
     Active Substance: ZOLPIDEM\ZOLPIDEM TARTRATE
  15. POTASSIUM [Concomitant]
     Active Substance: POTASSIUM
  16. FENTANYL. [Suspect]
     Active Substance: FENTANYL

REACTIONS (2)
  - Pain [Recovered/Resolved]
  - Muscle spasticity [Recovered/Resolved]
